FAERS Safety Report 7358612-1 (Version None)
Quarter: 2011Q1

REPORT INFORMATION
  Report Type: 
  Country: None (occurrence: None)
  Receive Date: 20110317
  Receipt Date: 20110310
  Transmission Date: 20110831
  Serious: Yes (Hospitalization, Other)
  Sender: FDA-Public Use
  Company Number: CA-ELI_LILLY_AND_COMPANY-CA201103003239

PATIENT
  Sex: Female

DRUGS (5)
  1. ZYPREXA [Suspect]
     Indication: SCHIZOPHRENIA
     Dosage: 10 MG, EACH EVENING
     Dates: start: 19980612
  2. ZYPREXA [Suspect]
     Dosage: 10 MG, UNK
  3. ZYPREXA [Suspect]
     Dosage: 5 MG, UNK
  4. ZOLOFT [Concomitant]
     Dosage: 50 MG, UNK
  5. PLAVIX [Concomitant]
     Dosage: 75 MG, UNK

REACTIONS (4)
  - HIGH DENSITY LIPOPROTEIN DECREASED [None]
  - BLOOD CHOLESTEROL INCREASED [None]
  - MYOCARDIAL INFARCTION [None]
  - DIABETES MELLITUS [None]
